FAERS Safety Report 18441804 (Version 4)
Quarter: 2021Q1

REPORT INFORMATION
  Report Type: Report from Study
  Country: US (occurrence: US)
  Receive Date: 20201029
  Receipt Date: 20210129
  Transmission Date: 20210419
  Serious: No
  Sender: FDA-Public Use
  Company Number: US-BIOVITRUM-2020US5613

PATIENT
  Sex: Female

DRUGS (5)
  1. KINERET [Suspect]
     Active Substance: ANAKINRA
     Route: 058
     Dates: start: 20201012
  2. ESTRADIOL. [Concomitant]
     Active Substance: ESTRADIOL
  3. DIAMOX SEQUELS [Concomitant]
     Active Substance: ACETAZOLAMIDE
  4. SYNTHROID [Concomitant]
     Active Substance: LEVOTHYROXINE SODIUM
  5. KINERET [Suspect]
     Active Substance: ANAKINRA
     Indication: RHEUMATOID ARTHRITIS
     Route: 058
     Dates: start: 20201011

REACTIONS (10)
  - Contusion [Unknown]
  - Rash [Unknown]
  - Product dose omission issue [Unknown]
  - Influenza like illness [Unknown]
  - Hyperacusis [Unknown]
  - Injection site erythema [Not Recovered/Not Resolved]
  - Somnolence [Unknown]
  - Injection site bruising [Unknown]
  - Blood creatine phosphokinase increased [Unknown]
  - Fatigue [Unknown]
